FAERS Safety Report 5460916-4 (Version None)
Quarter: 2007Q3

REPORT INFORMATION
  Report Type: 
  Country: None (occurrence: None)
  Receive Date: 20070810
  Receipt Date: 20070329
  Transmission Date: 20080115
  Serious: Yes (Hospitalization)
  Sender: FDA-Public Use
  Company Number: 200710505BWH

PATIENT
  Age: 79 Year
  Sex: Male
  Weight: 101.6057 kg

DRUGS (12)
  1. TRASYLOL [Suspect]
     Indication: CORONARY ARTERY BYPASS
     Dosage: 10 ML, ONCE, INTRAVENOUS
     Route: 042
     Dates: start: 20070213
  2. FENTANYL [Concomitant]
  3. VERSED [Concomitant]
  4. PANCURONIUM [Concomitant]
  5. ISOFLURANE [Concomitant]
  6. POVIDONE IODINE [Concomitant]
  7. ASPIRIN [Concomitant]
  8. ZOCOR [Concomitant]
  9. LISINOPRIL [Concomitant]
  10. HYDROCHLOROTHIAZIDE [Concomitant]
  11. ATENOLOL [Concomitant]
  12. ALPRAZOLAM [Concomitant]

REACTIONS (9)
  - ANAPHYLACTIC REACTION [None]
  - ANGIOEDEMA [None]
  - BLOOD PRESSURE DECREASED [None]
  - FACE OEDEMA [None]
  - HISTAMINE LEVEL DECREASED [None]
  - HISTAMINE LEVEL INCREASED [None]
  - HYPERSENSITIVITY [None]
  - URTICARIA [None]
  - VASCULAR RESISTANCE SYSTEMIC DECREASED [None]
